FAERS Safety Report 22331183 (Version 1)
Quarter: 2023Q2

REPORT INFORMATION
  Report Type: Spontaneous
  Country: US (occurrence: US)
  Receive Date: 20230517
  Receipt Date: 20230517
  Transmission Date: 20230722
  Serious: No
  Sender: FDA-Public Use
  Company Number: US-BRISTOL-MYERS SQUIBB COMPANY-2023-066712

PATIENT
  Age: 33 Year
  Sex: Female

DRUGS (1)
  1. BELATACEPT [Suspect]
     Active Substance: BELATACEPT
     Indication: Product used for unknown indication

REACTIONS (2)
  - Intentional product misuse [Unknown]
  - Nervous system disorder [Unknown]
